FAERS Safety Report 15987840 (Version 2)
Quarter: 2019Q1

REPORT INFORMATION
  Report Type: Spontaneous
  Country: US (occurrence: US)
  Receive Date: 20190220
  Receipt Date: 20190320
  Transmission Date: 20190418
  Serious: No
  Sender: FDA-Public Use
  Company Number: US-PFIZER INC-2019067349

PATIENT
  Age: 58 Year
  Sex: Female

DRUGS (1)
  1. NEURONTIN [Suspect]
     Active Substance: GABAPENTIN
     Indication: NERVE INJURY
     Dosage: 300 MG, AS NEEDED
     Route: 048

REACTIONS (5)
  - Ear pain [Unknown]
  - Intentional product misuse [Unknown]
  - Gastric disorder [Not Recovered/Not Resolved]
  - Wrong product administered [Unknown]
  - Product use in unapproved indication [Unknown]

NARRATIVE: CASE EVENT DATE: 20190210
